FAERS Safety Report 10068371 (Version 6)
Quarter: 2016Q2

REPORT INFORMATION
  Report Type: Spontaneous
  Country: US (occurrence: US)
  Receive Date: 20140409
  Receipt Date: 20160429
  Transmission Date: 20160815
  Serious: Yes (Other)
  Sender: FDA-Public Use
  Company Number: US-PFIZER INC-2014099058

PATIENT
  Sex: Male

DRUGS (3)
  1. GLUCOTROL XL [Suspect]
     Active Substance: GLIPIZIDE
     Dosage: UNK
  2. CELEBREX [Suspect]
     Active Substance: CELECOXIB
     Dosage: UNK
  3. GLYSET [Suspect]
     Active Substance: MIGLITOL
     Dosage: UNK

REACTIONS (2)
  - Abasia [Unknown]
  - Bedridden [Unknown]
